FAERS Safety Report 14008091 (Version 1)
Quarter: 2017Q3

REPORT INFORMATION
  Report Type: Spontaneous
  Country: US (occurrence: US)
  Receive Date: 20170925
  Receipt Date: 20170925
  Transmission Date: 20171128
  Serious: No
  Sender: FDA-Public Use
  Company Number: US-009507513-1709USA007816

PATIENT
  Sex: Female

DRUGS (1)
  1. NEXPLANON [Suspect]
     Active Substance: ETONOGESTREL
     Dosage: 1 ROD, PER 3 YEARS
     Route: 059
     Dates: start: 201703

REACTIONS (3)
  - Device deployment issue [Not Recovered/Not Resolved]
  - No adverse event [Unknown]
  - Migration of implanted drug [Not Recovered/Not Resolved]
